FAERS Safety Report 6802485-X (Version None)
Quarter: 2010Q2

REPORT INFORMATION
  Report Type: 
  Country: None (occurrence: None)
  Receive Date: 20100628
  Receipt Date: 20100616
  Transmission Date: 20101027
  Serious: Yes (Hospitalization, Other)
  Sender: FDA-Public Use
  Company Number: US-BAYER-200824911NA

PATIENT
  Age: 20 Year
  Sex: Female
  Weight: 52 kg

DRUGS (3)
  1. YAZ [Suspect]
     Indication: ACNE
     Route: 048
     Dates: start: 20080301, end: 20080602
  2. TYLENOL (CAPLET) [Concomitant]
     Indication: ABDOMINAL PAIN LOWER
     Route: 048
  3. MACROBID [Concomitant]
     Indication: URINARY TRACT INFECTION

REACTIONS (12)
  - BACK PAIN [None]
  - CHEST PAIN [None]
  - DEEP VEIN THROMBOSIS [None]
  - DYSPNOEA [None]
  - FLANK PAIN [None]
  - MUSCULOSKELETAL PAIN [None]
  - PAIN [None]
  - PAINFUL RESPIRATION [None]
  - PELVIC VENOUS THROMBOSIS [None]
  - PULMONARY THROMBOSIS [None]
  - UNEVALUABLE EVENT [None]
  - URINARY TRACT INFECTION [None]
